FAERS Safety Report 11576880 (Version 2)
Quarter: 2017Q2

REPORT INFORMATION
  Report Type: Spontaneous
  Country: US (occurrence: US)
  Receive Date: 20150930
  Receipt Date: 20170426
  Transmission Date: 20170829
  Serious: Yes (Hospitalization, Other)
  Sender: FDA-Public Use
  Company Number: US-BAYER-2015-427543

PATIENT
  Age: 24 Year
  Sex: Female

DRUGS (6)
  1. IRON [Concomitant]
     Active Substance: IRON
     Dosage: UNK
  2. PREDNISONE. [Concomitant]
     Active Substance: PREDNISONE
     Dosage: 40 MG, QD
  3. AVELOX [Suspect]
     Active Substance: MOXIFLOXACIN HYDROCHLORIDE
     Dosage: UNK
     Dates: start: 201109
  4. CLARITIN [Concomitant]
     Active Substance: LORATADINE
     Dosage: UNK
  5. CORTICOSTEROID NOS [Concomitant]
     Active Substance: CORTICOSTEROID NOS
     Dosage: UNK
  6. ZANTAC [Concomitant]
     Active Substance: RANITIDINE HYDROCHLORIDE
     Dosage: UNK

REACTIONS (83)
  - Eosinophil count abnormal [None]
  - Cough [None]
  - Abdominal pain [None]
  - Nausea [None]
  - Musculoskeletal discomfort [None]
  - Pain in extremity [None]
  - Depression [Recovering/Resolving]
  - Ligament sprain [None]
  - Productive cough [Recovering/Resolving]
  - Asthenia [None]
  - Nausea [None]
  - Dyspnoea exertional [None]
  - Vertigo [None]
  - Pyrexia [None]
  - Bronchitis [None]
  - Neuropathy peripheral [None]
  - Pain [None]
  - Neurological examination abnormal [None]
  - Pain in extremity [None]
  - Oedema peripheral [None]
  - Chronic sinusitis [None]
  - Respiratory tract congestion [None]
  - Muscular weakness [None]
  - Gait disturbance [None]
  - Application site pain [None]
  - Gastrooesophageal reflux disease [Recovering/Resolving]
  - Livedo reticularis [None]
  - Arthralgia [Recovering/Resolving]
  - Skin lesion [None]
  - Migraine with aura [None]
  - Bronchoscopy [None]
  - Fatigue [None]
  - Pneumonia [None]
  - Anxiety [None]
  - Antineutrophil cytoplasmic antibody positive [None]
  - Dyspnoea [None]
  - Myalgia [None]
  - Tendon pain [Recovered/Resolved]
  - Rash papular [None]
  - Back pain [Recovering/Resolving]
  - Headache [None]
  - Weight decreased [None]
  - Decreased appetite [None]
  - Visual impairment [None]
  - Pain in extremity [None]
  - Injury [None]
  - Erythema [None]
  - Vomiting [None]
  - Tongue ulceration [None]
  - Ear pain [None]
  - Chest pain [None]
  - Paraesthesia [None]
  - Arthralgia [None]
  - Initial insomnia [None]
  - Nasal oedema [None]
  - Dysuria [None]
  - Feeling cold [None]
  - Upper respiratory tract infection [None]
  - Hyperacusis [None]
  - Skin lesion [Recovered/Resolved]
  - Pain in extremity [None]
  - Eosinophilic granulomatosis with polyangiitis [None]
  - Emotional distress [None]
  - Hypersensitivity [None]
  - Vasculitis [None]
  - Rash [None]
  - Ulcer [None]
  - Dizziness postural [None]
  - Tinnitus [None]
  - Speech disorder [None]
  - Thirst [None]
  - Pollakiuria [None]
  - Fasciotomy [Recovering/Resolving]
  - Bronchiectasis [Recovering/Resolving]
  - Joint swelling [None]
  - Cough [None]
  - Sinus pain [None]
  - Asthma [Recovering/Resolving]
  - Sneezing [None]
  - Hordeolum [None]
  - Photophobia [None]
  - Vomiting [None]
  - Neck pain [None]

NARRATIVE: CASE EVENT DATE: 2012
